FAERS Safety Report 4415177-1 (Version None)
Quarter: 2004Q3

REPORT INFORMATION
  Report Type: 
  Country: None (occurrence: None)
  Receive Date: 20040804
  Receipt Date: 20040726
  Transmission Date: 20050211
  Serious: Yes (Other)
  Sender: FDA-Public Use
  Company Number: JP-BRISTOL-MYERS SQUIBB COMPANY-12653234

PATIENT
  Age: 56 Year
  Sex: Female

DRUGS (3)
  1. BRIPLATIN [Suspect]
     Indication: CERVIX CARCINOMA
     Route: 013
     Dates: start: 20030227, end: 20030227
  2. MITOMYCIN-C BULK POWDER [Suspect]
     Indication: CERVIX CARCINOMA
     Route: 013
     Dates: start: 20030227, end: 20030227
  3. ONCOVIN [Suspect]
     Indication: CERVIX CARCINOMA
     Route: 013
     Dates: start: 20030227, end: 20030227

REACTIONS (1)
  - BLADDER NECROSIS [None]
